FAERS Safety Report 4700456-0 (Version None)
Quarter: 2005Q2

REPORT INFORMATION
  Report Type: 
  Country: None (occurrence: None)
  Receive Date: 20050627
  Receipt Date: 20050615
  Transmission Date: 20051028
  Serious: Yes (Other)
  Sender: FDA-Public Use
  Company Number: BR-ROCHE-408022

PATIENT
  Age: 46 Year
  Sex: Female

DRUGS (1)
  1. ROACUTAN [Suspect]
     Indication: ACNE
     Route: 048

REACTIONS (3)
  - AMENORRHOEA [None]
  - SALIVARY GLAND ENLARGEMENT [None]
  - SHOULDER PAIN [None]
